FAERS Safety Report 7130495-4 (Version None)
Quarter: 2010Q4

REPORT INFORMATION
  Report Type: 
  Country: None (occurrence: None)
  Receive Date: 20101101
  Receipt Date: 20100729
  Transmission Date: 20110411
  Serious: No
  Sender: FDA-Public Use
  Company Number: 2010-10408

PATIENT
  Age: 71 Year
  Sex: Male

DRUGS (1)
  1. RAPAFLO [Suspect]
     Indication: BENIGN PROSTATIC HYPERPLASIA
     Dosage: 1/2 CAPSULE, DAILY, ORAL
     Route: 048
     Dates: start: 20100201

REACTIONS (1)
  - CONSTIPATION [None]
